FAERS Safety Report 5235388-5 (Version None)
Quarter: 2007Q1

REPORT INFORMATION
  Report Type: 
  Country: None (occurrence: None)
  Receive Date: 20070212
  Receipt Date: 20070129
  Transmission Date: 20070707
  Serious: Yes (Hospitalization)
  Sender: FDA-Public Use
  Company Number: 2007SE00567

PATIENT
  Age: 72 Year
  Sex: Male
  Weight: 75 kg

DRUGS (3)
  1. SEROQUEL [Suspect]
     Indication: MAJOR DEPRESSION
     Route: 048
     Dates: start: 20050601, end: 20060401
  2. SEROPRAM [Concomitant]
     Indication: MAJOR DEPRESSION
     Route: 048
     Dates: start: 20050401, end: 20060401
  3. XANAX [Concomitant]
     Indication: MAJOR DEPRESSION
     Route: 048
     Dates: start: 20050401

REACTIONS (1)
  - THROMBOCYTOPENIA [None]
